FAERS Safety Report 8252955-5 (Version None)
Quarter: 2012Q2

REPORT INFORMATION
  Report Type: 
  Country: None (occurrence: None)
  Receive Date: 20120402
  Receipt Date: 20120221
  Transmission Date: 20120825
  Serious: No
  Sender: FDA-Public Use
  Company Number: US-ABBOTT-12P-163-0908360-00

PATIENT
  Sex: Male
  Weight: 88.53 kg

DRUGS (9)
  1. DOXYCYCLINE [Concomitant]
     Indication: ACNE
  2. PRILOSEC [Concomitant]
     Indication: GASTROOESOPHAGEAL REFLUX DISEASE
  3. ANDROGEL [Suspect]
     Indication: BLOOD TESTOSTERONE DECREASED
     Dosage: THREE PUMP ACTUATIONS DAILY
     Dates: start: 20070101, end: 20111201
  4. ANDROGEL [Suspect]
     Indication: BLOOD TESTOSTERONE DECREASED
     Dates: start: 20111220, end: 20120201
  5. PLENDIL [Concomitant]
     Indication: HYPERTENSION
  6. ASPIRIN [Concomitant]
     Indication: CARDIAC DISORDER
  7. CENTRUM [Concomitant]
     Indication: PRODUCT USED FOR UNKNOWN INDICATION
  8. TESTOSTERONE [Suspect]
     Indication: BLOOD TESTOSTERONE DECREASED
     Route: 050
     Dates: start: 20120201
  9. BENICAR [Concomitant]
     Indication: HYPERTENSION

REACTIONS (8)
  - PARAESTHESIA [None]
  - LOSS OF LIBIDO [None]
  - DYSURIA [None]
  - PROSTATOMEGALY [None]
  - POLLAKIURIA [None]
  - SKIN IRRITATION [None]
  - PAIN [None]
  - BACK PAIN [None]
